FAERS Safety Report 22714596 (Version 7)
Quarter: 2023Q4

REPORT INFORMATION
  Report Type: Report from Study
  Country: US (occurrence: US)
  Receive Date: 20230718
  Receipt Date: 20231205
  Transmission Date: 20240109
  Serious: Yes (Other)
  Sender: FDA-Public Use
  Company Number: US-002147023-NVSC2023US157109

PATIENT
  Sex: Female

DRUGS (1)
  1. XIIDRA [Suspect]
     Active Substance: LIFITEGRAST
     Indication: Product used for unknown indication
     Dosage: UNK
     Route: 047

REACTIONS (16)
  - Pneumonia [Unknown]
  - Circulatory collapse [Unknown]
  - Limb injury [Unknown]
  - Feeling abnormal [Unknown]
  - Cervical radiculopathy [Unknown]
  - Headache [Unknown]
  - Neck pain [Unknown]
  - Anxiety [Unknown]
  - COVID-19 [Unknown]
  - Brain fog [Unknown]
  - Rebound effect [Unknown]
  - Stress [Unknown]
  - Pain [Unknown]
  - Nausea [Unknown]
  - Hyperventilation [Unknown]
  - Musculoskeletal discomfort [Unknown]
